FAERS Safety Report 25111002 (Version 3)
Quarter: 2025Q2

REPORT INFORMATION
  Report Type: Report from Study
  Country: US (occurrence: US)
  Receive Date: 20250324
  Receipt Date: 20250611
  Transmission Date: 20250716
  Serious: No
  Sender: ACADIA PHARMACEUTICALS
  Company Number: US-ACADIA PHARMACEUTICALS INC.-ACA-2025-PIM-003090

PATIENT
  Age: 79 Year
  Sex: Male

DRUGS (7)
  1. NUPLAZID [Suspect]
     Active Substance: PIMAVANSERIN TARTRATE
     Indication: Parkinson^s disease
     Dosage: 34 MILLIGRAM, QD
     Route: 048
     Dates: start: 20241015
  2. MIDODRINE [Concomitant]
     Active Substance: MIDODRINE
  3. TAMSULOSIN [Concomitant]
     Active Substance: TAMSULOSIN
  4. FINASTERIDE [Concomitant]
     Active Substance: FINASTERIDE
  5. SERTRALINE [Concomitant]
     Active Substance: SERTRALINE HYDROCHLORIDE
  6. RYTARY [Concomitant]
     Active Substance: CARBIDOPA\LEVODOPA
  7. MIRTAZAPINE [Concomitant]
     Active Substance: MIRTAZAPINE

REACTIONS (2)
  - Dizziness [Not Recovered/Not Resolved]
  - Hypotension [Not Recovered/Not Resolved]

NARRATIVE: CASE EVENT DATE: 20250601
